FAERS Safety Report 16009906 (Version 1)
Quarter: 2019Q1

REPORT INFORMATION
  Report Type: Spontaneous
  Country: US (occurrence: US)
  Receive Date: 20190227
  Receipt Date: 20190227
  Transmission Date: 20190418
  Serious: No
  Sender: FDA-Public Use
  Company Number: US-SA-2019SA053262

PATIENT
  Sex: Female

DRUGS (1)
  1. TUBERSOL [Suspect]
     Active Substance: TUBERCULIN PURIFIED PROTEIN DERIVATIVE
     Indication: TUBERCULIN TEST
     Dosage: 0.1 ML
     Route: 065
     Dates: start: 20190121

REACTIONS (8)
  - Dyspnoea [Unknown]
  - Nausea [Unknown]
  - Heart rate increased [Unknown]
  - Urticaria [Not Recovered/Not Resolved]
  - Pruritus [Not Recovered/Not Resolved]
  - Pallor [Unknown]
  - Pyrexia [Unknown]
  - Dizziness [Unknown]

NARRATIVE: CASE EVENT DATE: 20190121
